FAERS Safety Report 24696796 (Version 1)
Quarter: 2024Q4

REPORT INFORMATION
  Report Type: Spontaneous
  Country: DK (occurrence: DK)
  Receive Date: 20241204
  Receipt Date: 20241204
  Transmission Date: 20250114
  Serious: Yes (Other)
  Sender: LUNDBECK
  Company Number: None

PATIENT

DRUGS (1)
  1. VYEPTI [Suspect]
     Active Substance: EPTINEZUMAB-JJMR
     Indication: Cluster headache
     Dosage: 400 MILLIGRAM
     Route: 041
     Dates: start: 202306

REACTIONS (4)
  - Dermatitis bullous [Not Recovered/Not Resolved]
  - Skin ulcer [Not Recovered/Not Resolved]
  - Pruritus [Not Recovered/Not Resolved]
  - Overdose [Unknown]

NARRATIVE: CASE EVENT DATE: 20230101
